FAERS Safety Report 14407202 (Version 1)
Quarter: 2018Q1

REPORT INFORMATION
  Report Type: Spontaneous
  Country: US (occurrence: US)
  Receive Date: 20180116
  Receipt Date: 20180116
  Transmission Date: 20180509
  Serious: Yes (Life-Threatening, Hospitalization)
  Sender: FDA-Public Use
  Company Number: None

PATIENT
  Age: 72 Year
  Sex: Male

DRUGS (1)
  1. RILUZOLE. [Suspect]
     Active Substance: RILUZOLE
     Route: 048
     Dates: start: 20171208, end: 20180102

REACTIONS (4)
  - Oedema peripheral [None]
  - Therapy cessation [None]
  - Pulmonary embolism [None]
  - Oedema [None]

NARRATIVE: CASE EVENT DATE: 20180102
